FAERS Safety Report 7996597-5 (Version None)
Quarter: 2011Q4

REPORT INFORMATION
  Report Type: 
  Country: None (occurrence: None)
  Receive Date: 20111221
  Receipt Date: 20111213
  Transmission Date: 20120403
  Serious: Yes (Hospitalization, Other)
  Sender: FDA-Public Use
  Company Number: US-BIOGENIDEC-2011BI046252

PATIENT
  Sex: Female
  Weight: 99 kg

DRUGS (5)
  1. DIET MANAGEMENT PROD [Concomitant]
     Route: 048
  2. TRAMADOL HCL [Concomitant]
     Indication: PAIN
     Route: 048
  3. NUVIGIL [Concomitant]
     Route: 048
  4. AVONEX [Suspect]
     Indication: MULTIPLE SCLEROSIS
     Route: 030
  5. METOPROLOL TARTRATE [Concomitant]
     Route: 048

REACTIONS (3)
  - INFECTION [None]
  - SURGERY [None]
  - HYPERTENSION [None]
